FAERS Safety Report 7546840-1 (Version None)
Quarter: 2011Q2

REPORT INFORMATION
  Report Type: 
  Country: None (occurrence: None)
  Receive Date: 20110614
  Receipt Date: 20110603
  Transmission Date: 20111010
  Serious: Yes (Other)
  Sender: FDA-Public Use
  Company Number: GB-JNJFOC-20110601902

PATIENT
  Sex: Male

DRUGS (6)
  1. INTELENCE [Suspect]
     Indication: HIV INFECTION
     Route: 048
  2. PREZISTA [Suspect]
     Indication: HIV INFECTION
     Route: 048
  3. PREZISTA [Suspect]
     Route: 048
  4. INTELENCE [Suspect]
     Route: 048
  5. RITONAVIR [Concomitant]
     Route: 065
  6. RITONAVIR [Concomitant]
     Indication: HIV INFECTION
     Route: 065

REACTIONS (1)
  - TARDIVE DYSKINESIA [None]
